FAERS Safety Report 24785126 (Version 1)
Quarter: 2024Q4

REPORT INFORMATION
  Report Type: Spontaneous
  Country: DE (occurrence: DE)
  Receive Date: 20241228
  Receipt Date: 20241228
  Transmission Date: 20250114
  Serious: Yes (Hospitalization)
  Sender: TEVA
  Company Number: None

PATIENT
  Age: 56 Year
  Sex: Female

DRUGS (12)
  1. VALPROIC ACID [Suspect]
     Active Substance: VALPROIC ACID
     Indication: Product used for unknown indication
     Dosage: DAILY DOSE: 600-2000 MG
     Route: 048
     Dates: start: 20240529, end: 20240618
  2. VALPROIC ACID [Suspect]
     Active Substance: VALPROIC ACID
     Indication: Product used for unknown indication
     Route: 048
     Dates: start: 20240826, end: 20240828
  3. VALPROIC ACID [Suspect]
     Active Substance: VALPROIC ACID
     Indication: Product used for unknown indication
     Route: 048
     Dates: start: 20240830
  4. VALPROIC ACID [Suspect]
     Active Substance: VALPROIC ACID
     Indication: Product used for unknown indication
     Route: 048
     Dates: start: 20240619, end: 20240714
  5. VALPROIC ACID [Suspect]
     Active Substance: VALPROIC ACID
     Indication: Product used for unknown indication
     Route: 048
     Dates: start: 20240715, end: 20240825
  6. VALPROIC ACID [Suspect]
     Active Substance: VALPROIC ACID
     Indication: Product used for unknown indication
     Route: 048
     Dates: start: 20240829
  7. HYGROTON [Concomitant]
     Active Substance: CHLORTHALIDONE
     Indication: Product used for unknown indication
     Dosage: FOR A LONG TIME - B.A.W.
     Route: 048
  8. QUETIAPINE [Concomitant]
     Active Substance: QUETIAPINE
     Indication: Product used for unknown indication
     Dosage: 600 MG B.A.W
     Route: 048
     Dates: start: 20240802
  9. QUETIAPINE [Concomitant]
     Active Substance: QUETIAPINE
     Indication: Product used for unknown indication
     Route: 048
     Dates: start: 20240422, end: 20240618
  10. QUETIAPINE [Concomitant]
     Active Substance: QUETIAPINE
     Indication: Product used for unknown indication
     Route: 048
     Dates: start: 20240619, end: 20240703
  11. QUETIAPINE [Concomitant]
     Active Substance: QUETIAPINE
     Indication: Product used for unknown indication
     Dosage: QUETIAPIN RETARD
     Route: 048
     Dates: start: 2018, end: 20240421
  12. QUETIAPINE [Concomitant]
     Active Substance: QUETIAPINE
     Indication: Product used for unknown indication
     Route: 048
     Dates: start: 20240704, end: 20240801

REACTIONS (4)
  - Hypoacusis [Recovered/Resolved]
  - Restlessness [Unknown]
  - Dysgeusia [Unknown]
  - Deafness transitory [Recovered/Resolved]

NARRATIVE: CASE EVENT DATE: 20240723
